FAERS Safety Report 7807365-9 (Version None)
Quarter: 2011Q4

REPORT INFORMATION
  Report Type: 
  Country: None (occurrence: None)
  Receive Date: 20111011
  Receipt Date: 20111003
  Transmission Date: 20120403
  Serious: No
  Sender: FDA-Public Use
  Company Number: US-B.I. PHARMACEUTICALS,INC./RIDGEFIELD-2011-BP-23369BP

PATIENT
  Age: 85 Year
  Sex: Female

DRUGS (10)
  1. PRADAXA [Suspect]
     Dosage: 150 MG
     Route: 048
     Dates: start: 20110201
  2. HYDROCHLOROTHIAZIDE [Concomitant]
     Indication: HYPERTENSION
     Route: 048
  3. CALCIUM CARBONATE [Concomitant]
     Indication: SUPPLEMENTATION THERAPY
     Route: 048
  4. MAGNESIUM [Concomitant]
     Indication: SUPPLEMENTATION THERAPY
     Route: 048
  5. MEDICATION NOT FURTHER SPECIFIED [Concomitant]
     Indication: FIBROMYALGIA
     Route: 048
  6. PRADAXA [Suspect]
     Indication: ATRIAL FIBRILLATION
     Dosage: 300 MG
     Route: 048
     Dates: start: 20110201, end: 20110201
  7. VIT B [Concomitant]
     Indication: SUPPLEMENTATION THERAPY
     Route: 048
  8. VIT B6 [Concomitant]
     Indication: SUPPLEMENTATION THERAPY
     Route: 048
  9. MEDICATION NOT FURTHER SPECIFIED [Concomitant]
     Indication: MACULAR DEGENERATION
     Route: 047
  10. VIT D [Concomitant]
     Indication: SUPPLEMENTATION THERAPY
     Dosage: 50000 U
     Route: 048

REACTIONS (4)
  - ABDOMINAL DISCOMFORT [None]
  - MUSCLE SWELLING [None]
  - FATIGUE [None]
  - MYALGIA [None]
